FAERS Safety Report 4867660-2 (Version None)
Quarter: 2005Q4

REPORT INFORMATION
  Report Type: 
  Country: None (occurrence: None)
  Receive Date: 20051222
  Receipt Date: 20051222
  Transmission Date: 20060501
  Serious: Yes (Life-Threatening, Hospitalization)
  Sender: FDA-Public Use
  Company Number: None

PATIENT
  Age: 35 Year
  Sex: Female

DRUGS (3)
  1. KETOROLAC     15 MG/ML   1ML   BEDFORD LABS [Suspect]
     Indication: PERIOPERATIVE ANALGESIA
     Dosage: KETOROLAC  Q6H  PRN   IV BOLUS
     Route: 040
  2. AMPICILLIN    2 GRAMS    BRISTOL MYERS SQUIBB [Suspect]
     Indication: PROPHYLAXIS
     Dosage: AMPICILLIN   Q12H   IV
     Route: 042
  3. AMPICILLIN    2 GRAMS    BRISTOL MYERS SQUIBB [Suspect]
     Indication: THERAPEUTIC PROCEDURE
     Dosage: AMPICILLIN   Q12H   IV
     Route: 042

REACTIONS (5)
  - DYSPHAGIA [None]
  - DYSPNOEA [None]
  - LOCALISED OEDEMA [None]
  - PHARYNGEAL OEDEMA [None]
  - PNEUMONIA ASPIRATION [None]
